FAERS Safety Report 10617516 (Version 2)
Quarter: 2014Q4

REPORT INFORMATION
  Report Type: Spontaneous
  Country: FR (occurrence: FR)
  Receive Date: 20141201
  Receipt Date: 20141201
  Transmission Date: 20150529
  Serious: Yes (Death, Other)
  Sender: FDA-Public Use
  Company Number: FR-ELI_LILLY_AND_COMPANY-FR201411000805

PATIENT
  Age: 60 Year
  Sex: Male

DRUGS (10)
  1. PRAVASTATIN [Concomitant]
     Active Substance: PRAVASTATIN\PRAVASTATIN SODIUM
     Dosage: 20 MG, QD
     Route: 065
  2. HEPARIN [Suspect]
     Active Substance: HEPARIN SODIUM
     Indication: PRODUCT USED FOR UNKNOWN INDICATION
     Dosage: 5000 UNK, UNKNOWN
     Route: 042
     Dates: start: 20140827, end: 20140827
  3. KARDEGIC [Suspect]
     Active Substance: ASPIRIN LYSINE
     Indication: PRODUCT USED FOR UNKNOWN INDICATION
     Dosage: 160 MG, UNKNOWN
     Route: 048
  4. ESIDREX [Concomitant]
     Active Substance: HYDROCHLOROTHIAZIDE
     Dosage: 10 MG, UNK
     Route: 065
  5. RAMIPRIL. [Concomitant]
     Active Substance: RAMIPRIL
     Dosage: 10 MG, UNK
  6. GLUCOPHAGE [Concomitant]
     Active Substance: METFORMIN HYDROCHLORIDE
     Dosage: 1000 MG, UNK
     Route: 065
  7. LEVEMIR [Concomitant]
     Active Substance: INSULIN DETEMIR
     Dosage: 30 MG, QD
  8. EFIENT [Suspect]
     Active Substance: PRASUGREL HYDROCHLORIDE
     Indication: PRODUCT USED FOR UNKNOWN INDICATION
     Dosage: 10 MG, UNKNOWN
     Route: 048
     Dates: start: 20140522
  9. ATENOLOL. [Suspect]
     Active Substance: ATENOLOL
     Indication: PRODUCT USED FOR UNKNOWN INDICATION
     Dosage: 50 MG, BID
     Route: 065
  10. MOPRAL                             /00661201/ [Concomitant]
     Active Substance: OMEPRAZOLE SODIUM
     Dosage: 20 MG, UNK
     Route: 065

REACTIONS (14)
  - Multi-organ failure [Fatal]
  - Blood potassium abnormal [Unknown]
  - Bradycardia [Unknown]
  - Atrioventricular block first degree [Unknown]
  - Aspartate aminotransferase abnormal [Unknown]
  - Haemoglobin abnormal [Unknown]
  - Peripheral ischaemia [Unknown]
  - Intestinal haemorrhage [Unknown]
  - Blood creatine abnormal [Unknown]
  - White blood cell disorder [Unknown]
  - Alanine aminotransferase abnormal [Unknown]
  - Metabolic acidosis [Unknown]
  - Blood lactic acid [Unknown]
  - Coagulation factor V level abnormal [Unknown]

NARRATIVE: CASE EVENT DATE: 20140822
